FAERS Safety Report 4290466-2 (Version None)
Quarter: 2004Q1

REPORT INFORMATION
  Report Type: 
  Country: None (occurrence: None)
  Receive Date: 20040209
  Receipt Date: 20040128
  Transmission Date: 20041129
  Serious: Yes (Other)
  Sender: FDA-Public Use
  Company Number: 2004196368IN

PATIENT
  Age: 36 Year
  Sex: Male

DRUGS (3)
  1. XALATAN [Suspect]
     Indication: GLAUCOMA
     Dosage: 1 GTT, QD, OPHTHALMIC
     Route: 047
  2. CIPROFLOXACIN [Concomitant]
  3. PREDNISOLONE [Concomitant]

REACTIONS (6)
  - BLINDNESS [None]
  - CHOROIDAL DETACHMENT [None]
  - EYE DISORDER [None]
  - INTRAOCULAR PRESSURE DECREASED [None]
  - PAIN [None]
  - POST PROCEDURAL COMPLICATION [None]
